FAERS Safety Report 9496790 (Version 1)
Quarter: 2013Q3

REPORT INFORMATION
  Report Type: Spontaneous
  Country: US (occurrence: None)
  Receive Date: 20130903
  Receipt Date: 20130903
  Transmission Date: 20140515
  Serious: Yes (Disabling, Other)
  Sender: FDA-Public Use
  Company Number: None

PATIENT
  Age: 15 Year
  Sex: Male
  Weight: 55.34 kg

DRUGS (1)
  1. METHYLPHENIDAT [Suspect]
     Indication: ATTENTION DEFICIT/HYPERACTIVITY DISORDER
     Dosage: 2 PILLS ONCE DAILY TAKEN BY MOUTH
     Route: 048
     Dates: start: 20130726, end: 20130826

REACTIONS (11)
  - Psychotic disorder [None]
  - Screaming [None]
  - Muscle twitching [None]
  - Weight decreased [None]
  - Abnormal behaviour [None]
  - Erythema [None]
  - Erythema [None]
  - Abasia [None]
  - Speech disorder [None]
  - Therapeutic response unexpected with drug substitution [None]
  - Product substitution issue [None]
